FAERS Safety Report 19179930 (Version 1)
Quarter: 2021Q2

REPORT INFORMATION
  Report Type: Spontaneous
  Country: US (occurrence: US)
  Receive Date: 20210426
  Receipt Date: 20210426
  Transmission Date: 20210717
  Serious: No
  Sender: FDA-Public Use
  Company Number: None

PATIENT
  Age: 7 Month
  Sex: Male

DRUGS (2)
  1. VITAMIN D DROPS [Concomitant]
  2. HEMANGEOL [Suspect]
     Active Substance: PROPRANOLOL HYDROCHLORIDE
     Indication: HAEMANGIOMA
     Route: 048

REACTIONS (3)
  - Drug intolerance [None]
  - Vomiting [None]
  - Sleep disorder [None]

NARRATIVE: CASE EVENT DATE: 20210401
